FAERS Safety Report 15763402 (Version 2)
Quarter: 2019Q1

REPORT INFORMATION
  Report Type: Spontaneous
  Country: DE (occurrence: DE)
  Receive Date: 20181227
  Receipt Date: 20190123
  Transmission Date: 20190417
  Serious: Yes (Other)
  Sender: FDA-Public Use
  Company Number: DE-PFIZER INC-2018527997

PATIENT
  Sex: Male

DRUGS (1)
  1. PREGABALIN RATIOPHARM [Suspect]
     Active Substance: PREGABALIN

REACTIONS (3)
  - Subcutaneous abscess [Unknown]
  - Rash [Unknown]
  - Discomfort [Unknown]
